FAERS Safety Report 8213939-6 (Version None)
Quarter: 2012Q1

REPORT INFORMATION
  Report Type: 
  Country: None (occurrence: None)
  Receive Date: 20120316
  Receipt Date: 20120303
  Transmission Date: 20120608
  Serious: No
  Sender: FDA-Public Use
  Company Number: JP-ELI_LILLY_AND_COMPANY-JP201103004302

PATIENT
  Sex: Female

DRUGS (1)
  1. FORTEO [Suspect]
     Dosage: UNK
     Route: 058
     Dates: end: 20111201

REACTIONS (17)
  - TINEA INFECTION [None]
  - INJECTION SITE HAEMATOMA [None]
  - NECK PAIN [None]
  - ARTHROPATHY [None]
  - WEIGHT DECREASED [None]
  - DECREASED ACTIVITY [None]
  - INCONTINENCE [None]
  - SKIN CHAPPED [None]
  - ASTHENIA [None]
  - OROPHARYNGEAL PAIN [None]
  - HEADACHE [None]
  - INJECTION SITE PAIN [None]
  - FALL [None]
  - MUSCULOSKELETAL PAIN [None]
  - DECREASED APPETITE [None]
  - VASCULAR FRAGILITY [None]
  - MUSCLE SPASMS [None]
